FAERS Safety Report 15742460 (Version 2)
Quarter: 2019Q1

REPORT INFORMATION
  Report Type: Spontaneous
  Country: US (occurrence: US)
  Receive Date: 20181219
  Receipt Date: 20190309
  Transmission Date: 20190417
  Serious: Yes (Other)
  Sender: FDA-Public Use
  Company Number: PHEH2018US053573

PATIENT
  Sex: Female

DRUGS (1)
  1. TASIGNA [Suspect]
     Active Substance: NILOTINIB
     Indication: CHRONIC MYELOID LEUKAEMIA
     Dosage: 200 MG, BID
     Route: 048
     Dates: start: 2010

REACTIONS (10)
  - Hypertension [Unknown]
  - Peripheral arterial occlusive disease [Unknown]
  - Hypercholesterolaemia [Unknown]
  - Mitral valve disease [Unknown]
  - Dyslipidaemia [Unknown]
  - Dyspnoea [Unknown]
  - Myocardial infarction [Unknown]
  - Peripheral vascular disorder [Unknown]
  - Hypertriglyceridaemia [Unknown]
  - Coronary artery disease [Unknown]

NARRATIVE: CASE EVENT DATE: 2016
